FAERS Safety Report 17568374 (Version 1)
Quarter: 2020Q1

REPORT INFORMATION
  Report Type: Spontaneous
  Country: JP (occurrence: JP)
  Receive Date: 20200320
  Receipt Date: 20200320
  Transmission Date: 20200409
  Serious: Yes (Hospitalization, Other)
  Sender: FDA-Public Use
  Company Number: JP-JNJFOC-20191206582

PATIENT
  Age: 76 Year
  Sex: Male
  Weight: 74 kg

DRUGS (4)
  1. RIVAROXABAN [Suspect]
     Active Substance: RIVAROXABAN
     Indication: ATRIAL FIBRILLATION
     Dosage: DAILY DOSE 15 MG
     Route: 048
     Dates: start: 20160719, end: 20200206
  2. PREMINENT [Suspect]
     Active Substance: HYDROCHLOROTHIAZIDE\LOSARTAN POTASSIUM
     Indication: HYPERTENSION
     Dosage: DAILY DOSE LOSARTAN 50 MG, HYDROCHLOROTHIAZIDE 12.5 MG
     Route: 048
     Dates: start: 20190308, end: 20191202
  3. SODIUM RABEPRAZOLE [Suspect]
     Active Substance: RABEPRAZOLE SODIUM
     Indication: HYPERTENSION
     Dosage: DAILY DOSE 10 MG
     Route: 048
     Dates: start: 20150106
  4. AZELNIDIPINE [Suspect]
     Active Substance: AZELNIDIPINE
     Indication: HYPERTENSION
     Dosage: DAILY DOSE 8 MG
     Route: 048
     Dates: start: 20190829, end: 20191202

REACTIONS (5)
  - Tumour haemorrhage [Recovered/Resolved]
  - Metastases to peritoneum [Unknown]
  - Oesophageal polyp [Unknown]
  - Gastric cancer stage IV [Unknown]
  - Tumour invasion [Unknown]

NARRATIVE: CASE EVENT DATE: 20191201
